FAERS Safety Report 6449153-4 (Version None)
Quarter: 2009Q4

REPORT INFORMATION
  Report Type: 
  Country: None (occurrence: None)
  Receive Date: 20091120
  Receipt Date: 20091117
  Transmission Date: 20100525
  Serious: Yes (Other)
  Sender: FDA-Public Use
  Company Number: ES-MERCK-0810ESP00007

PATIENT
  Age: 49 Year
  Sex: Male

DRUGS (1)
  1. FOSAMAX [Suspect]
     Indication: HIP FRACTURE
     Route: 048
     Dates: start: 20050630

REACTIONS (1)
  - ATRIAL FIBRILLATION [None]
